FAERS Safety Report 22123585 (Version 2)
Quarter: 2023Q1

REPORT INFORMATION
  Report Type: Other
  Country: CA (occurrence: None)
  Receive Date: 20230322
  Receipt Date: 20230331
  Transmission Date: 20230418
  Serious: Yes (Hospitalization)
  Sender: FDA-Public Use
  Company Number: CA-ROCHE-3311165

PATIENT
  Age: 47 Year
  Sex: Female

DRUGS (1)
  1. PERJETA [Suspect]
     Active Substance: PERTUZUMAB
     Indication: Breast cancer stage III
     Route: 042
     Dates: start: 20230223, end: 20230223

REACTIONS (7)
  - Diarrhoea [Recovered/Resolved]
  - Diarrhoea [Unknown]
  - Anaemia [Unknown]
  - Headache [Not Recovered/Not Resolved]
  - Nausea [Unknown]
  - Erythema [Unknown]
  - Fatigue [Unknown]

NARRATIVE: CASE EVENT DATE: 20230223
